FAERS Safety Report 8759713 (Version 2)
Quarter: 2012Q4

REPORT INFORMATION
  Report Type: 
  Country: GB (occurrence: GB)
  Receive Date: 20120829
  Receipt Date: 20120906
  Transmission Date: 20130627
  Serious: Yes (Other)
  Sender: FDA-Public Use
  Company Number: GB-009507513-1208GBR010388

PATIENT

DRUGS (9)
  1. DEXAMETHASONE TABLETS BP  2.0MG [Suspect]
     Indication: MUSCULAR WEAKNESS
     Dosage: 4 mg, tid
     Route: 048
     Dates: start: 20120627, end: 20120702
  2. ATORVASTATIN [Concomitant]
     Dosage: 20 mg, qd
     Route: 048
  3. BISOPROLOL [Concomitant]
     Dosage: 2.5 mg, qd
     Route: 048
  4. CINNARIZINE [Concomitant]
     Dosage: 30 mg, tid
     Route: 048
  5. DIAZEPAM [Concomitant]
     Dosage: 5 mg, tid
  6. IMIPRAMINE HYDROCHLORIDE [Concomitant]
     Dosage: 25 mg, tid
     Route: 048
  7. IRBESARTAN [Concomitant]
     Dosage: 150 mg, qd
     Route: 048
  8. OMEPRAZOLE [Concomitant]
     Dosage: 20 mg, qd
  9. ORAMORPH [Concomitant]
     Dosage: 25 ml, qid

REACTIONS (2)
  - Generalised erythema [Not Recovered/Not Resolved]
  - Skin warm [Not Recovered/Not Resolved]
